FAERS Safety Report 21749512 (Version 1)
Quarter: 2022Q4

REPORT INFORMATION
  Report Type: Report from Study
  Country: US (occurrence: US)
  Receive Date: 20221219
  Receipt Date: 20221219
  Transmission Date: 20230112
  Serious: No
  Sender: FDA-Public Use
  Company Number: US-ABBVIE-4203715

PATIENT
  Age: 58 Year
  Sex: Female

DRUGS (6)
  1. HUMIRA [Suspect]
     Active Substance: ADALIMUMAB
     Indication: Crohn^s disease
     Dosage: CESSATION DATE FOR ASYMPTOMATIC  COVID 19 INFECTION WAS 2022.
     Route: 058
     Dates: start: 201701
  2. METOPROLOL [Concomitant]
     Active Substance: METOPROLOL
     Indication: Supraventricular tachycardia
     Route: 065
  3. METOPROLOL [Concomitant]
     Active Substance: METOPROLOL
     Indication: Supraventricular tachycardia
     Route: 065
  4. METOPROLOL [Concomitant]
     Active Substance: METOPROLOL
     Indication: Supraventricular tachycardia
     Route: 065
  5. METOPROLOL [Concomitant]
     Active Substance: METOPROLOL
     Indication: Supraventricular tachycardia
     Route: 065
  6. LOPERAMIDE [Concomitant]
     Active Substance: LOPERAMIDE
     Indication: Diarrhoea
     Route: 065

REACTIONS (2)
  - Hypertension [Not Recovered/Not Resolved]
  - Asymptomatic COVID-19 [Recovered/Resolved]

NARRATIVE: CASE EVENT DATE: 20220101
